FAERS Safety Report 19296860 (Version 1)
Quarter: 2021Q2

REPORT INFORMATION
  Report Type: Spontaneous
  Country: US (occurrence: US)
  Receive Date: 20210524
  Receipt Date: 20210524
  Transmission Date: 20210717
  Serious: Yes (Other)
  Sender: FDA-Public Use
  Company Number: US-SLATE RUN PHARMACEUTICALS-21US000489

PATIENT

DRUGS (2)
  1. METHYLENE BLUE. [Suspect]
     Active Substance: METHYLENE BLUE
     Indication: CARDIOGENIC SHOCK
     Route: 065
  2. SODIUM NITROPRUSSIDE INJECTION [Suspect]
     Active Substance: SODIUM NITROPRUSSIDE
     Indication: POLYURIA
     Route: 065

REACTIONS (4)
  - Off label use [Unknown]
  - Cardiogenic shock [Unknown]
  - Haemolytic anaemia [Unknown]
  - Methaemoglobinaemia [Unknown]
